FAERS Safety Report 6372469-7 (Version None)
Quarter: 2009Q3

REPORT INFORMATION
  Report Type: 
  Country: None (occurrence: None)
  Receive Date: 20090924
  Receipt Date: 20080813
  Transmission Date: 20100115
  Serious: Yes (Other)
  Sender: FDA-Public Use
  Company Number: US-ASTRAZENECA-2008UW16537

PATIENT
  Age: 59 Year
  Sex: Female

DRUGS (8)
  1. SEROQUEL [Suspect]
     Indication: BIPOLAR DISORDER
     Route: 048
  2. SEROQUEL [Suspect]
     Route: 048
  3. LEXAPRO [Concomitant]
     Dates: start: 20080501
  4. PERCOCET [Concomitant]
     Dosage: 10/325 TID
  5. AVINZA [Concomitant]
  6. NEURONTIN [Concomitant]
  7. LAMICTAL [Concomitant]
  8. XANAX [Concomitant]

REACTIONS (4)
  - AGGRESSION [None]
  - HOT FLUSH [None]
  - SYNCOPE [None]
  - WEIGHT INCREASED [None]
